FAERS Safety Report 19817063 (Version 8)
Quarter: 2022Q1

REPORT INFORMATION
  Report Type: Spontaneous
  Country: US (occurrence: US)
  Receive Date: 20210910
  Receipt Date: 20220217
  Transmission Date: 20220423
  Serious: Yes (Other)
  Sender: FDA-Public Use
  Company Number: US-PFIZER INC-2021399239

PATIENT
  Age: 90 Year
  Sex: Female

DRUGS (2)
  1. XALATAN [Suspect]
     Active Substance: LATANOPROST
     Dosage: 2.5 ML (1 DROP BOTH EYES)
  2. XALATAN [Suspect]
     Active Substance: LATANOPROST
     Dosage: UNK, ALTERNATE DAY

REACTIONS (21)
  - Ejection fraction decreased [Unknown]
  - Eye irritation [Unknown]
  - Eye disorder [Unknown]
  - Concussion [Unknown]
  - Fall [Unknown]
  - Memory impairment [Unknown]
  - Drug hypersensitivity [Unknown]
  - Peripheral swelling [Unknown]
  - Hypoacusis [Unknown]
  - Weight decreased [Unknown]
  - Diarrhoea [Unknown]
  - Neck injury [Unknown]
  - Skeletal injury [Unknown]
  - Spinal column injury [Unknown]
  - Therapeutic response unexpected [Unknown]
  - Arthropathy [Unknown]
  - Stress [Unknown]
  - Weight increased [Unknown]
  - Product dose omission issue [Unknown]
  - Off label use [Unknown]
  - Physical product label issue [Unknown]

NARRATIVE: CASE EVENT DATE: 20210407
